FAERS Safety Report 12082830 (Version 3)
Quarter: 2019Q2

REPORT INFORMATION
  Report Type: Report from Study
  Country: DE (occurrence: DE)
  Receive Date: 20160217
  Receipt Date: 20190412
  Transmission Date: 20190711
  Serious: Yes (Death, Life-Threatening, Hospitalization)
  Sender: FDA-Public Use
  Company Number: PHHY2016DE019875

PATIENT
  Age: 54 Year
  Sex: Female
  Weight: 66.7 kg

DRUGS (2)
  1. EXEMESTANE. [Suspect]
     Active Substance: EXEMESTANE
     Indication: BREAST CANCER
     Dosage: UNK
     Route: 065
     Dates: start: 20141010
  2. AFINITOR [Suspect]
     Active Substance: EVEROLIMUS
     Indication: BREAST CANCER
     Dosage: 5 MG, UNK
     Route: 065
     Dates: start: 20141010, end: 20141110

REACTIONS (7)
  - Mucosal inflammation [Unknown]
  - Multiple organ dysfunction syndrome [Fatal]
  - Myalgia [Unknown]
  - Thrombocytopenia [Unknown]
  - Hepatotoxicity [Recovered/Resolved]
  - Skin toxicity [Unknown]
  - Bone pain [Unknown]

NARRATIVE: CASE EVENT DATE: 20141028
